FAERS Safety Report 13375252 (Version 2)
Quarter: 2017Q1

REPORT INFORMATION
  Report Type: Spontaneous
  Country: US (occurrence: US)
  Receive Date: 20170327
  Receipt Date: 20170329
  Transmission Date: 20170429
  Serious: No
  Sender: FDA-Public Use
  Company Number: US-CLOVIS ONCOLOGY-CLO-2017-000080

PATIENT
  Age: 66 Year
  Sex: Female

DRUGS (2)
  1. RUBRACA [Suspect]
     Active Substance: RUCAPARIB CAMSYLATE
     Indication: OVARIAN CANCER
     Dosage: 600 MG, BID
     Route: 048
     Dates: start: 20170209
  2. NEXIUM [Concomitant]
     Active Substance: ESOMEPRAZOLE MAGNESIUM
     Dosage: 40 MG, QD
     Route: 048

REACTIONS (4)
  - Dysphonia [Recovered/Resolved]
  - Nausea [Not Recovered/Not Resolved]
  - Nasopharyngitis [Unknown]
  - Upper-airway cough syndrome [Unknown]

NARRATIVE: CASE EVENT DATE: 2017
